FAERS Safety Report 6390768-X (Version None)
Quarter: 2009Q4

REPORT INFORMATION
  Report Type: 
  Country: None (occurrence: None)
  Receive Date: 20091001
  Receipt Date: 20090714
  Transmission Date: 20100525
  Serious: No
  Sender: FDA-Public Use
  Company Number: 1000007497

PATIENT
  Age: 54 Year
  Sex: Female

DRUGS (4)
  1. BYSTOLIC [Suspect]
     Indication: TACHYCARDIA
     Dosage: 5 MG (5 MG, 1 IN 1 D), ORAL
     Route: 048
     Dates: start: 20090701
  2. PRISTIQ [Concomitant]
  3. DIAMOX SRC [Concomitant]
  4. LISINOPRIL [Concomitant]

REACTIONS (1)
  - BRADYCARDIA [None]
